FAERS Safety Report 10224271 (Version 2)
Quarter: 2015Q1

REPORT INFORMATION
  Report Type: Spontaneous
  Country: US (occurrence: None)
  Receive Date: 20140605
  Receipt Date: 20150114
  Transmission Date: 20150720
  Serious: Yes (Death, Hospitalization)
  Sender: FDA-Public Use
  Company Number: UNT-2014-001205

PATIENT
  Age: 62 Year
  Sex: Female
  Weight: 45.4 kg

DRUGS (1)
  1. REMODULIN [Suspect]
     Active Substance: TREPROSTINIL
     Indication: COR PULMONALE CHRONIC
     Dosage: 0.03 UG/KG, CONTINUING, SUBCUTANEOUS
     Route: 058
     Dates: start: 20130828

REACTIONS (2)
  - Lung transplant [None]
  - Death [None]

NARRATIVE: CASE EVENT DATE: 20140516
